FAERS Safety Report 25777488 (Version 1)
Quarter: 2025Q3

REPORT INFORMATION
  Report Type: Report from Study
  Country: US (occurrence: US)
  Receive Date: 20250909
  Receipt Date: 20250909
  Transmission Date: 20251020
  Serious: Yes (Hospitalization, Other)
  Sender: ROCHE
  Company Number: US-ROCHE-10000380018

PATIENT

DRUGS (2)
  1. MOSUNETUZUMAB [Suspect]
     Active Substance: MOSUNETUZUMAB
     Indication: Neoplasm malignant
     Route: 065
  2. GLOFITAMAB [Suspect]
     Active Substance: GLOFITAMAB
     Indication: Neoplasm malignant
     Route: 065

REACTIONS (10)
  - Cytomegalovirus infection [Unknown]
  - COVID-19 [Unknown]
  - Respiratory syncytial virus infection [Unknown]
  - Influenza [Unknown]
  - Bronchopulmonary aspergillosis [Unknown]
  - Fusarium infection [Unknown]
  - Pneumonia cryptococcal [Unknown]
  - Pseudomonal bacteraemia [Unknown]
  - Clostridium difficile infection [Unknown]
  - Immune effector cell-associated neurotoxicity syndrome [Unknown]
